FAERS Safety Report 6631531-1 (Version None)
Quarter: 2010Q1

REPORT INFORMATION
  Report Type: 
  Country: None (occurrence: None)
  Receive Date: 20100312
  Receipt Date: 20100302
  Transmission Date: 20100710
  Serious: Yes (Other)
  Sender: FDA-Public Use
  Company Number: PHHY2010GB13748

PATIENT

DRUGS (1)
  1. EXJADE [Suspect]

REACTIONS (2)
  - DIABETES MELLITUS [None]
  - RENAL IMPAIRMENT [None]
